FAERS Safety Report 4473607-3 (Version None)
Quarter: 2004Q4

REPORT INFORMATION
  Report Type: 
  Country: None (occurrence: None)
  Receive Date: 20041013
  Receipt Date: 20041007
  Transmission Date: 20050328
  Serious: Yes (Hospitalization, Disabling)
  Sender: FDA-Public Use
  Company Number: BR-MERCK-0410BRA00284

PATIENT
  Age: 50 Year
  Sex: Male

DRUGS (4)
  1. ATENOLOL [Concomitant]
     Indication: BLOOD PRESSURE INCREASED
     Route: 048
     Dates: start: 20000101
  2. CAPTOPRIL [Concomitant]
     Indication: BLOOD PRESSURE INCREASED
     Route: 048
     Dates: start: 20000101
  3. VIOXX [Suspect]
     Indication: INFLAMMATION
     Route: 048
     Dates: start: 20020517, end: 20020521
  4. ZOCOR [Concomitant]
     Route: 048

REACTIONS (1)
  - CEREBROVASCULAR ACCIDENT [None]
